FAERS Safety Report 8512451-4 (Version None)
Quarter: 2012Q3

REPORT INFORMATION
  Report Type: 
  Country: None (occurrence: None)
  Receive Date: 20120716
  Receipt Date: 20120705
  Transmission Date: 20120928
  Serious: Yes (Hospitalization)
  Sender: FDA-Public Use
  Company Number: DE-ROCHE-1084855

PATIENT
  Sex: Female
  Weight: 76 kg

DRUGS (6)
  1. METOPROLOL TARTRATE [Concomitant]
     Indication: HYPERTENSION
     Dosage: DAILY
     Route: 048
  2. XELODA [Suspect]
     Indication: COLON CANCER
     Dosage: LAST DOSE PRIOE TO SAE 18/AUG/2011
     Route: 048
     Dates: start: 20110711
  3. OXALIPLATIN [Suspect]
     Indication: COLON CANCER
     Dosage: LAST DOSE PRIOE TO SAE 08/AUG/2011
     Route: 042
     Dates: start: 20110711
  4. ENOXAPARIN [Concomitant]
     Indication: PROPHYLAXIS
     Dosage: DAILY
     Route: 048
  5. LEVOTHYROXINE SODIUM [Concomitant]
     Indication: HYPOTHYROIDISM
     Dosage: DAILY
     Route: 048
  6. INSULIN [Concomitant]
     Indication: DIABETES MELLITUS
     Dosage: DOSE: UNKNOWN, DAILY
     Route: 058

REACTIONS (1)
  - ILEOSTOMY CLOSURE [None]
